FAERS Safety Report 18492404 (Version 1)
Quarter: 2020Q4

REPORT INFORMATION
  Report Type: Spontaneous
  Country: GB (occurrence: GB)
  Receive Date: 20201111
  Receipt Date: 20201111
  Transmission Date: 20210114
  Serious: Yes (Other)
  Sender: FDA-Public Use
  Company Number: GB-ANIPHARMA-2020-UK-000222

PATIENT
  Age: 32 Year
  Sex: Male

DRUGS (8)
  1. VINCRISTINE [Suspect]
     Active Substance: VINCRISTINE
     Indication: T-CELL LYMPHOMA
     Dates: start: 201102, end: 201109
  2. CYCLOPHOSPHAMIDE CAPSULES (NON-SPECIFIC) [Suspect]
     Active Substance: CYCLOPHOSPHAMIDE
     Indication: T-CELL LYMPHOMA
     Dates: start: 201102, end: 201109
  3. DOXORUBICIN [Suspect]
     Active Substance: DOXORUBICIN
     Indication: T-CELL LYMPHOMA
     Dates: start: 201102, end: 201109
  4. ETOPOSIDE. [Suspect]
     Active Substance: ETOPOSIDE
     Indication: T-CELL LYMPHOMA
     Dates: start: 201102, end: 201109
  5. METHOTREXATE. [Suspect]
     Active Substance: METHOTREXATE
     Indication: T-CELL LYMPHOMA
     Dates: start: 201102, end: 201109
  6. PREDNISOLONE. [Suspect]
     Active Substance: PREDNISOLONE
     Indication: T-CELL LYMPHOMA
     Dates: start: 201102, end: 201109
  7. CYTARABINE. [Suspect]
     Active Substance: CYTARABINE
     Indication: T-CELL LYMPHOMA
     Dates: start: 201102, end: 201109
  8. IFOSFAMIDE. [Suspect]
     Active Substance: IFOSFAMIDE
     Indication: T-CELL LYMPHOMA
     Dates: start: 201102, end: 201109

REACTIONS (1)
  - Osteonecrosis [Unknown]
